FAERS Safety Report 7347534-8 (Version None)
Quarter: 2011Q1

REPORT INFORMATION
  Report Type: 
  Country: None (occurrence: None)
  Receive Date: 20110311
  Receipt Date: 20110225
  Transmission Date: 20110831
  Serious: Yes (Other)
  Sender: FDA-Public Use
  Company Number: US-BAYER-201036184NA

PATIENT
  Sex: Female

DRUGS (8)
  1. YAZ [Suspect]
     Indication: PRODUCT USED FOR UNKNOWN INDICATION
     Dates: start: 20070101, end: 20090601
  2. PROMETHAZINE DM [Concomitant]
     Dosage: UNK
     Dates: start: 20080828
  3. CEFPROZIL [Concomitant]
     Dosage: 500 MG, UNK
     Dates: start: 20080828
  4. UNCODEABLE ^UNCLASSIFIABLE^ [Concomitant]
     Dosage: UNK
     Dates: start: 20080606
  5. HYDROCODONE BITARTRATE AND ACETAMINOPHEN [Concomitant]
     Dosage: 5-500
     Dates: start: 20090408
  6. PREDNISONE TAB [Concomitant]
     Dosage: 20 MG, UNK
     Dates: start: 20090422
  7. AZITHROMYCIN [Concomitant]
     Dosage: 250 MG, UNK
     Dates: start: 20080606
  8. METRONIDAZOLE [Concomitant]
     Dosage: 500 MG, UNK
     Dates: start: 20090123

REACTIONS (1)
  - GALLBLADDER DISORDER [None]
